FAERS Safety Report 7313163-5 (Version None)
Quarter: 2011Q1

REPORT INFORMATION
  Report Type: 
  Country: None (occurrence: None)
  Receive Date: 20110225
  Receipt Date: 20110222
  Transmission Date: 20110831
  Serious: No
  Sender: FDA-Public Use
  Company Number: US-ELI_LILLY_AND_COMPANY-US201101002835

PATIENT
  Sex: Female
  Weight: 102.95 kg

DRUGS (14)
  1. BYETTA [Suspect]
     Dosage: 10 UG, 2/D
     Route: 058
     Dates: start: 20110120
  2. LOSARTAN POTASSIUM [Concomitant]
     Dosage: 50 MG, DAILY (1/D)
     Route: 048
     Dates: start: 20101221
  3. METOPROLOL SUCCINATE [Concomitant]
     Dosage: 50 MG, DAILY (1/D)
     Route: 048
     Dates: start: 20101221
  4. BYETTA [Suspect]
     Dosage: 10 UG, 2/D
     Route: 058
     Dates: start: 20100415, end: 20100819
  5. BYETTA [Suspect]
     Dosage: 5 UG, 2/D
     Route: 058
     Dates: start: 20110113, end: 20110120
  6. METFORMIN [Concomitant]
     Indication: TYPE 2 DIABETES MELLITUS
     Dosage: 2000 MG, 2/D
     Route: 048
  7. BYETTA [Suspect]
     Indication: TYPE 2 DIABETES MELLITUS
     Dosage: 5 UG, 2/D
     Route: 058
     Dates: start: 20100308, end: 20100415
  8. ASPIRIN [Concomitant]
     Dosage: 81 MG, UNK
     Route: 048
  9. PLAVIX [Concomitant]
     Dosage: 75 MG, DAILY (1/D)
     Route: 048
     Dates: start: 20101221
  10. GLIPIZIDE [Concomitant]
     Indication: TYPE 2 DIABETES MELLITUS
     Dosage: 20 MG, 2/D
     Route: 048
  11. BYETTA [Suspect]
     Dosage: 10 UG, 2/D
     Route: 058
     Dates: start: 20110106, end: 20110113
  12. INSULIN [Concomitant]
  13. SIMVASTATIN [Concomitant]
     Dosage: 40 MG, DAILY (1/D)
     Route: 048
     Dates: start: 20101221
  14. FUROSEMIDE [Concomitant]
     Dosage: 40 MG, DAILY (1/D)
     Route: 048
     Dates: start: 20101221

REACTIONS (10)
  - ASTHENIA [None]
  - VOMITING [None]
  - WEIGHT DECREASED [None]
  - OFF LABEL USE [None]
  - NASOPHARYNGITIS [None]
  - COUGH [None]
  - NAUSEA [None]
  - NASAL CONGESTION [None]
  - EYE IRRITATION [None]
  - BLOOD GLUCOSE INCREASED [None]
